FAERS Safety Report 7329359-2 (Version None)
Quarter: 2011Q1

REPORT INFORMATION
  Report Type: 
  Country: None (occurrence: None)
  Receive Date: 20110303
  Receipt Date: 20110222
  Transmission Date: 20110831
  Serious: Yes (Hospitalization)
  Sender: FDA-Public Use
  Company Number: JP-MERCK-1102USA00607

PATIENT
  Age: 84 Year
  Sex: Female
  Weight: 34 kg

DRUGS (9)
  1. GASCON [Concomitant]
     Indication: GASTRITIS
     Route: 048
     Dates: start: 20090625, end: 20110121
  2. MAGLAX [Concomitant]
     Indication: DYSCHEZIA
     Route: 048
     Dates: start: 20100908, end: 20110121
  3. GASMOTIN [Concomitant]
     Indication: GASTRITIS
     Route: 048
     Dates: start: 20090625, end: 20110121
  4. AMLODIPINE BESYLATE [Concomitant]
     Dosage: DAILY DOSAGE UNKNOWN
     Route: 048
  5. NORVASC [Concomitant]
     Indication: HYPERTENSION
     Route: 048
     Dates: start: 20090514, end: 20110121
  6. MIYA BM [Concomitant]
     Indication: DYSCHEZIA
     Dosage: DAILY DOSAGE UNKNOWN
     Route: 048
     Dates: start: 20090625, end: 20110121
  7. FLUITRAN [Concomitant]
     Indication: HYPERTENSION
     Route: 048
     Dates: start: 20101110, end: 20110121
  8. JANUVIA [Suspect]
     Indication: DIABETES MELLITUS
     Route: 048
     Dates: start: 20110113, end: 20110121
  9. BLOPRESS [Concomitant]
     Indication: HYPERTENSION
     Dosage: DAILY DOSAGE UNKNOWN
     Route: 048
     Dates: end: 20110121

REACTIONS (1)
  - LIVER DISORDER [None]
